FAERS Safety Report 7498007-3 (Version None)
Quarter: 2011Q2

REPORT INFORMATION
  Report Type: 
  Country: None (occurrence: None)
  Receive Date: 20110524
  Receipt Date: 20110516
  Transmission Date: 20111010
  Serious: No
  Sender: FDA-Public Use
  Company Number: US-BIOGENIDEC-2011BI014459

PATIENT
  Sex: Female

DRUGS (1)
  1. TYSABRI [Suspect]
     Indication: MULTIPLE SCLEROSIS
     Route: 042
     Dates: start: 20101022, end: 20110415

REACTIONS (6)
  - FLUSHING [None]
  - NAUSEA [None]
  - FATIGUE [None]
  - NEUTRALISING ANTIBODIES POSITIVE [None]
  - DIZZINESS [None]
  - DYSPNOEA [None]
